FAERS Safety Report 5568759-8 (Version None)
Quarter: 2007Q4

REPORT INFORMATION
  Report Type: 
  Country: None (occurrence: None)
  Receive Date: 20071220
  Receipt Date: 20061220
  Transmission Date: 20080405
  Serious: No
  Sender: FDA-Public Use
  Company Number: A0632308A

PATIENT
  Age: 77 Year
  Sex: Male

DRUGS (9)
  1. AVODART [Suspect]
     Indication: BENIGN PROSTATIC HYPERPLASIA
     Route: 048
  2. ETODOLAC [Concomitant]
  3. METFORMIN HCL [Concomitant]
  4. LISINOPRIL [Concomitant]
  5. TRIAMTERENE AND HYDROCHLOROTHIAZIDE [Concomitant]
  6. VERAPAMIL [Concomitant]
  7. LOVASTATIN [Concomitant]
  8. DOCUSATE [Concomitant]
  9. LAXATIVE [Concomitant]

REACTIONS (1)
  - SCROTAL SWELLING [None]
